FAERS Safety Report 8792494 (Version 2)
Quarter: 2012Q4

REPORT INFORMATION
  Report Type: 
  Country: US (occurrence: US)
  Receive Date: 20120918
  Receipt Date: 20121219
  Transmission Date: 20130627
  Serious: Yes (Other)
  Sender: FDA-Public Use
  Company Number: PHEH2012US017485

PATIENT
  Sex: Female
  Weight: 91.61 kg

DRUGS (10)
  1. GILENYA [Suspect]
     Indication: MULTIPLE SCLEROSIS
     Dosage: 0.5 mg, QD
     Route: 048
     Dates: start: 20120517, end: 20120904
  2. ASPIRIN [Concomitant]
     Dosage: 81 mg, daily
  3. HYDROCHLOROTHIAZIDE [Concomitant]
     Dosage: 25 mg, daily
  4. PROVIGIL [Concomitant]
  5. CELEXA [Concomitant]
     Dosage: 40 mg, day
  6. POTASSIUM CHLORIDE [Concomitant]
  7. FIORINAL [Concomitant]
  8. LOVASTATIN [Concomitant]
  9. NEXIUM [Concomitant]
  10. HYOSCYAMINE [Concomitant]
     Dosage: 0.25 mg, TID

REACTIONS (4)
  - Quadriparesis [Unknown]
  - Macular oedema [Unknown]
  - Visual impairment [Unknown]
  - Headache [Unknown]
